FAERS Safety Report 8113370-8 (Version None)
Quarter: 2012Q1

REPORT INFORMATION
  Report Type: 
  Country: None (occurrence: None)
  Receive Date: 20120203
  Receipt Date: 20120131
  Transmission Date: 20120608
  Serious: Yes (Death)
  Sender: FDA-Public Use
  Company Number: PHHY2012JP006622

PATIENT
  Age: 81 Year
  Sex: Male

DRUGS (4)
  1. EXELON [Suspect]
     Dosage: 13.5 MG, DAILY
     Route: 062
  2. EXELON [Suspect]
     Dosage: 18 MG, DAILY
     Route: 062
     Dates: end: 20111202
  3. EXELON [Suspect]
     Dosage: 4.5 MG, DAILY
     Route: 062
     Dates: start: 20110914
  4. EXELON [Suspect]
     Dosage: 9 MG, DAILY
     Route: 062

REACTIONS (1)
  - RESPIRATORY FAILURE [None]
